FAERS Safety Report 19074345 (Version 4)
Quarter: 2021Q2

REPORT INFORMATION
  Report Type: Other
  Country: US (occurrence: US)
  Receive Date: 20210330
  Receipt Date: 20210612
  Transmission Date: 20210717
  Serious: Yes (Other)
  Sender: FDA-Public Use
  Company Number: US-ROCHE-2794561

PATIENT
  Age: 45 Year
  Sex: Female
  Weight: 116.68 kg

DRUGS (9)
  1. CALCIUM [Concomitant]
     Active Substance: CALCIUM
     Indication: MULTIPLE SCLEROSIS
     Route: 048
     Dates: start: 2005
  2. RITUXAN [Suspect]
     Active Substance: RITUXIMAB
     Indication: MULTIPLE SCLEROSIS
     Route: 065
  3. PROBIOTICA [Concomitant]
     Active Substance: PROBIOTICS NOS
     Dosage: 2 UNIT NOT REPORTED
     Dates: start: 2019
  4. OCREVUS [Suspect]
     Active Substance: OCRELIZUMAB
     Indication: RELAPSING-REMITTING MULTIPLE SCLEROSIS
     Dosage: (PRESCRIBED AS 300 MG ON DAY 1 AND DAY 15 AND 600 MG ONCE IN 6 MONTHS)??2 HALF?DOSES?DATE OF TREATME
     Route: 042
     Dates: start: 20200924
  5. TOPAMAX [Concomitant]
     Active Substance: TOPIRAMATE
     Indication: MIGRAINE
     Dosage: 1?50MG PILL IN THE MORNING
     Route: 048
  6. TOPAMAX [Concomitant]
     Active Substance: TOPIRAMATE
     Dosage: 1?50MG PILL IN THE MORNING
     Route: 048
  7. PAXIL [Concomitant]
     Active Substance: PAROXETINE HYDROCHLORIDE
     Indication: ANXIETY
     Route: 048
  8. PAXIL [Concomitant]
     Active Substance: PAROXETINE HYDROCHLORIDE
     Indication: DEPRESSION
     Route: 048
  9. BIOTIN [Concomitant]
     Active Substance: BIOTIN
     Indication: MULTIPLE SCLEROSIS
     Route: 048
     Dates: start: 2018

REACTIONS (26)
  - Flank pain [Unknown]
  - Groin pain [Unknown]
  - Lipoma [Unknown]
  - Arthralgia [Unknown]
  - Off label use [Unknown]
  - Urticaria [Unknown]
  - Headache [Unknown]
  - Fatigue [Not Recovered/Not Resolved]
  - Obesity [Unknown]
  - Aphthous ulcer [Unknown]
  - COVID-19 [Recovered/Resolved]
  - Multiple sclerosis relapse [Unknown]
  - Vitamin B12 deficiency [Unknown]
  - Amnesia [Unknown]
  - Swelling [Unknown]
  - Mass [Unknown]
  - Dysuria [Unknown]
  - Alopecia [Not Recovered/Not Resolved]
  - Skin papilloma [Unknown]
  - Blood pressure increased [Unknown]
  - Limb mass [Unknown]
  - Hypercholesterolaemia [Unknown]
  - Back pain [Unknown]
  - Hepatic steatosis [Unknown]
  - Vulvovaginal dryness [Unknown]
  - Abdominal pain [Unknown]

NARRATIVE: CASE EVENT DATE: 202012
